FAERS Safety Report 8876884 (Version 1)
Quarter: 2012Q4

REPORT INFORMATION
  Report Type: 
  Country: LK (occurrence: LK)
  Receive Date: 20121030
  Receipt Date: 20121030
  Transmission Date: 20130627
  Serious: Yes (Death, Hospitalization)
  Sender: FDA-Public Use
  Company Number: LK-WATSON-2012-18309

PATIENT
  Age: 12 Year
  Sex: Male

DRUGS (2)
  1. RISPERIDONE (UNKNOWN) [Suspect]
     Indication: TOURETTE^S DISORDER
     Dosage: 6 mg, daily
     Route: 065
  2. HALOPERIDOL [Suspect]
     Indication: TOURETTE^S DISORDER
     Dosage: 15 mg, daily
     Route: 065

REACTIONS (1)
  - Drug ineffective [Not Recovered/Not Resolved]
